FAERS Safety Report 6157047-7 (Version None)
Quarter: 2009Q2

REPORT INFORMATION
  Report Type: 
  Country: None (occurrence: None)
  Receive Date: 20090413
  Receipt Date: 20090403
  Transmission Date: 20091009
  Serious: Yes (Other)
  Sender: FDA-Public Use
  Company Number: FABR-1000705

PATIENT
  Age: 40 Year
  Sex: Male
  Weight: 62.4 kg

DRUGS (6)
  1. FABRAZYME [Suspect]
     Indication: FABRY'S DISEASE
     Dosage: 70 MG, Q2W, INTRAVENOUS
     Route: 042
     Dates: start: 20070426
  2. TEGRETOL [Concomitant]
  3. DIOVAN [Concomitant]
  4. TINTEN [Concomitant]
  5. NAPOSIN [Concomitant]
  6. VOTAN SR [Concomitant]

REACTIONS (1)
  - PROTEINURIA [None]
